FAERS Safety Report 4299139-3 (Version None)
Quarter: 2004Q1

REPORT INFORMATION
  Report Type: 
  Country: None (occurrence: None)
  Receive Date: 20040217
  Receipt Date: 20040217
  Transmission Date: 20041129
  Serious: Yes (Life-Threatening, Hospitalization)
  Sender: FDA-Public Use
  Company Number: None

PATIENT
  Age: 64 Year
  Sex: Male
  Weight: 158.759 kg

DRUGS (10)
  1. LOVENOX [Suspect]
     Indication: DEEP VENOUS THROMBOSIS PROPHYLAXIS
     Dosage: 40 MG DAILY SUBCUTANEOUS
     Route: 058
     Dates: start: 20031210, end: 20031216
  2. PREDNISONE [Suspect]
     Indication: CHRONIC OBSTRUCTIVE AIRWAYS DISEASE
     Dosage: ORAL
     Route: 048
     Dates: start: 20031209, end: 20031220
  3. REGLAN [Concomitant]
  4. BRETHINE [Concomitant]
  5. LOPRESSOR [Concomitant]
  6. LIBRIUM [Concomitant]
  7. ASPIRIN [Concomitant]
  8. MULTI-VITAMIN [Concomitant]
  9. ATIVAN [Concomitant]
  10. TEQUIN [Concomitant]

REACTIONS (1)
  - UPPER GASTROINTESTINAL HAEMORRHAGE [None]
